FAERS Safety Report 7830189-3 (Version None)
Quarter: 2011Q4

REPORT INFORMATION
  Report Type: 
  Country: None (occurrence: None)
  Receive Date: 20111021
  Receipt Date: 20111007
  Transmission Date: 20120403
  Serious: Yes (Other)
  Sender: FDA-Public Use
  Company Number: PHHY2011FR89484

PATIENT
  Sex: Female

DRUGS (2)
  1. LAMALINE [Concomitant]
     Indication: BACK PAIN
     Dosage: UNK UKN, UNK
  2. TASIGNA [Suspect]
     Indication: ACUTE LYMPHOCYTIC LEUKAEMIA
     Dosage: 800 MG, DAILY
     Route: 048
     Dates: start: 20080801, end: 20090301

REACTIONS (1)
  - DEPRESSION [None]
